FAERS Safety Report 15752176 (Version 2)
Quarter: 2019Q1

REPORT INFORMATION
  Report Type: Report from Study
  Country: DE (occurrence: DE)
  Receive Date: 20181221
  Receipt Date: 20190111
  Transmission Date: 20190417
  Serious: Yes (Death, Life-Threatening, Hospitalization)
  Sender: FDA-Public Use
  Company Number: DE-JNJFOC-20181219162

PATIENT
  Age: 28 Year
  Sex: Male
  Weight: 66 kg

DRUGS (4)
  1. STELARA [Suspect]
     Active Substance: USTEKINUMAB
     Indication: CROHN^S DISEASE
     Route: 058
     Dates: start: 20181212
  2. STELARA [Suspect]
     Active Substance: USTEKINUMAB
     Indication: CROHN^S DISEASE
     Route: 058
     Dates: start: 20180921
  3. VITAMIN D [Suspect]
     Active Substance: CHOLECALCIFEROL
     Indication: CROHN^S DISEASE
     Route: 065
  4. PREDNISOLONE. [Concomitant]
     Active Substance: PREDNISOLONE
     Indication: CROHN^S DISEASE
     Route: 065
     Dates: start: 20181221, end: 20190105

REACTIONS (6)
  - Metastases to peritoneum [Fatal]
  - Acute kidney injury [Unknown]
  - Klebsiella sepsis [Fatal]
  - Small intestine adenocarcinoma [Fatal]
  - Pancreatitis [Unknown]
  - Paget-Schroetter syndrome [Not Recovered/Not Resolved]

NARRATIVE: CASE EVENT DATE: 20181125
